FAERS Safety Report 15146282 (Version 4)
Quarter: 2023Q4

REPORT INFORMATION
  Report Type: Spontaneous
  Country: US (occurrence: US)
  Receive Date: 20180715
  Receipt Date: 20231113
  Transmission Date: 20240110
  Serious: No
  Sender: FDA-Public Use
  Company Number: US-JNJFOC-20180704744

PATIENT
  Sex: Male

DRUGS (9)
  1. RISPERDAL [Suspect]
     Active Substance: RISPERIDONE
     Indication: Autism spectrum disorder
     Route: 048
  2. RISPERDAL [Suspect]
     Active Substance: RISPERIDONE
     Indication: Psychotic disorder
     Dosage: VARYING DOSE OF 0.5 MG AND 1 MG (HALF IN THE AM AND EVERY BEDTIME)
     Route: 048
     Dates: start: 20110717, end: 20130318
  3. RISPERDAL [Suspect]
     Active Substance: RISPERIDONE
     Indication: Attention deficit hyperactivity disorder
  4. RISPERDAL [Suspect]
     Active Substance: RISPERIDONE
     Indication: Intellectual disability
  5. RISPERDAL [Suspect]
     Active Substance: RISPERIDONE
     Indication: Behaviour disorder
  6. RISPERIDONE [Suspect]
     Active Substance: RISPERIDONE
     Indication: Intellectual disability
     Dosage: IN VARYING DOSE OF 0.5 MG AND 1 MG
     Route: 048
     Dates: start: 20090528, end: 20140102
  7. RISPERIDONE [Suspect]
     Active Substance: RISPERIDONE
     Indication: Attention deficit hyperactivity disorder
  8. RISPERIDONE [Suspect]
     Active Substance: RISPERIDONE
     Indication: Psychotic disorder
  9. RISPERIDONE [Suspect]
     Active Substance: RISPERIDONE
     Indication: Autism spectrum disorder

REACTIONS (2)
  - Emotional distress [Unknown]
  - Gynaecomastia [Unknown]
